FAERS Safety Report 7091262-3 (Version None)
Quarter: 2010Q4

REPORT INFORMATION
  Report Type: 
  Country: None (occurrence: None)
  Receive Date: 20101109
  Receipt Date: 20101104
  Transmission Date: 20110411
  Serious: Yes (Other)
  Sender: FDA-Public Use
  Company Number: BR-ABBOTT-09P-020-0612040-00

PATIENT
  Sex: Female
  Weight: 52 kg

DRUGS (5)
  1. HUMIRA [Suspect]
     Indication: RHEUMATOID ARTHRITIS
     Dates: start: 20060101
  2. HUMIRA [Suspect]
     Dates: start: 20090601, end: 20090701
  3. HUMIRA [Suspect]
     Dates: start: 20090701
  4. ETODOLAC [Concomitant]
     Indication: RHEUMATOID ARTHRITIS
     Route: 048
     Dates: start: 20100301
  5. METHOTREXATE [Concomitant]
     Indication: RHEUMATOID ARTHRITIS
     Route: 048
     Dates: start: 20010101

REACTIONS (5)
  - ANGIOPATHY [None]
  - ARTHRALGIA [None]
  - DRY THROAT [None]
  - IMMUNODEFICIENCY [None]
  - JOINT SWELLING [None]
